FAERS Safety Report 10386031 (Version 1)
Quarter: 2014Q1

REPORT INFORMATION
  Report Type: Spontaneous
  Country: US (occurrence: None)
  Receive Date: 20140306
  Receipt Date: 20140306
  Transmission Date: 20141002
  Serious: Yes (Other)
  Sender: FDA-Public Use
  Company Number: 163-21880-13034370

PATIENT
  Age: 77 Year
  Sex: Female

DRUGS (2)
  1. REVLIMID (LENALIDOMIDE) (15 MILLIGRAM, CAPSULES) [Suspect]
     Indication: PLASMA CELL MYELOMA
     Dosage: 21 IN 28D
     Dates: start: 20130305
  2. MAALOX (MAALOX) [Concomitant]

REACTIONS (4)
  - Dry eye [None]
  - Dyspepsia [None]
  - Hypoaesthesia [None]
  - Diarrhoea [None]
